FAERS Safety Report 21424295 (Version 1)
Quarter: 2022Q4

REPORT INFORMATION
  Report Type: Spontaneous
  Country: DE (occurrence: DE)
  Receive Date: 20221007
  Receipt Date: 20221007
  Transmission Date: 20230113
  Serious: Yes (Hospitalization, Disabling, Other)
  Sender: FDA-Public Use
  Company Number: DE-EMA-DD-20220930-116353-125208

PATIENT
  Age: 13 Year
  Sex: Male
  Weight: 34 kg

DRUGS (14)
  1. TAVOR (LORAZEPAM) [Suspect]
     Active Substance: LORAZEPAM
     Dosage: 2MG/DAY
     Route: 048
     Dates: start: 19970506, end: 19970507
  2. ANAFRANIL [Suspect]
     Active Substance: CLOMIPRAMINE HYDROCHLORIDE
     Indication: Psychotic disorder
     Dosage: 9 MG, 3X/DAY (TID)
     Route: 042
     Dates: start: 19970421
  3. ANAFRANIL [Suspect]
     Active Substance: CLOMIPRAMINE HYDROCHLORIDE
     Dosage: 25 MG, 3X/DAY (TID)
     Route: 042
     Dates: start: 19970425
  4. ANAFRANIL [Suspect]
     Active Substance: CLOMIPRAMINE HYDROCHLORIDE
     Dosage: 50MG-25MG-50MG / DAY
     Route: 042
     Dates: start: 19970502, end: 19970507
  5. ANAFRANIL [Suspect]
     Active Substance: CLOMIPRAMINE HYDROCHLORIDE
     Indication: Psychotic disorder
     Dosage: 25 MG, 2X/DAY (BID)
     Route: 048
     Dates: start: 19970327
  6. ANAFRANIL [Suspect]
     Active Substance: CLOMIPRAMINE HYDROCHLORIDE
     Dosage: 25 MG, 3X/DAY (TID)
     Route: 048
     Dates: start: 19970401
  7. ANAFRANIL [Suspect]
     Active Substance: CLOMIPRAMINE HYDROCHLORIDE
     Dosage: 25 MG, 2X/DAY (BID)
     Route: 048
     Dates: start: 19970415
  8. THIORIDAZINE HYDROCHLORIDE [Suspect]
     Active Substance: THIORIDAZINE HYDROCHLORIDE
     Dosage: 30 MG, 1X/DAY
     Route: 048
     Dates: start: 19970506, end: 19970507
  9. VALIUM [Suspect]
     Active Substance: DIAZEPAM
     Dosage: 10 MG, 1X/DAY
     Route: 042
     Dates: start: 19970502, end: 19970506
  10. FLUNITRAZEPAM [Suspect]
     Active Substance: FLUNITRAZEPAM
     Dosage: 2 MG, 1X/DAY
     Route: 042
     Dates: start: 19970502, end: 19970506
  11. CHLORPROTHIXENE [Concomitant]
     Active Substance: CHLORPROTHIXENE
     Dosage: UNK
     Route: 065
     Dates: start: 19970512
  12. PROMETHAZINE [Concomitant]
     Active Substance: PROMETHAZINE HYDROCHLORIDE
     Dosage: UNK
     Route: 065
     Dates: start: 19970506
  13. GLUCOLYTE-2 [Concomitant]
     Dosage: 1.5 G, 1X/DAY
     Route: 042
     Dates: start: 19970506
  14. SULPIRIDE [Concomitant]
     Active Substance: SULPIRIDE
     Dosage: 25 MG, 3X/DAY
     Route: 065
     Dates: start: 19970210

REACTIONS (39)
  - Electroencephalogram abnormal [Not Recovered/Not Resolved]
  - Shock [Unknown]
  - Spinal fusion surgery [Unknown]
  - Blood creatine phosphokinase increased [Unknown]
  - Carnitine abnormal [Unknown]
  - Somnolence [Unknown]
  - Kyphoscoliosis [Recovered/Resolved with Sequelae]
  - Blood lactate dehydrogenase increased [Unknown]
  - Myocarditis [Recovered/Resolved with Sequelae]
  - Quadriparesis [Not Recovered/Not Resolved]
  - C-reactive protein increased [Recovered/Resolved]
  - Paralysis [Recovered/Resolved with Sequelae]
  - Encephalopathy [Unknown]
  - Tachyarrhythmia [Recovered/Resolved]
  - Cerebral artery embolism [Not Recovered/Not Resolved]
  - Electroencephalogram abnormal [Unknown]
  - White blood cell disorder [Recovered/Resolved]
  - Hypoxia [Unknown]
  - Brain injury [Not Recovered/Not Resolved]
  - Echocardiogram abnormal [Recovered/Resolved]
  - Overdose [Recovered/Resolved with Sequelae]
  - Cerebral artery embolism [Recovered/Resolved with Sequelae]
  - Central nervous system lesion [Not Recovered/Not Resolved]
  - Red blood cell sedimentation rate increased [Recovered/Resolved]
  - Blood creatine phosphokinase increased [Recovered/Resolved]
  - Red blood cell abnormality [Unknown]
  - Pericardial effusion [Recovered/Resolved]
  - Arrhythmia [Unknown]
  - Drug level increased [Recovered/Resolved with Sequelae]
  - Tachycardia [Unknown]
  - Troponin I increased [Recovered/Resolved]
  - Somnolence [Unknown]
  - Blood creatine phosphokinase MB increased [Recovered/Resolved]
  - Brain injury [Unknown]
  - Rhabdomyolysis [Recovered/Resolved with Sequelae]
  - Myoglobinuria [Recovered/Resolved]
  - Joint contracture [Recovered/Resolved with Sequelae]
  - Circulatory collapse [Recovered/Resolved]
  - Electrocardiogram repolarisation abnormality [Unknown]

NARRATIVE: CASE EVENT DATE: 19970506
